FAERS Safety Report 4810096-0 (Version None)
Quarter: 2005Q4

REPORT INFORMATION
  Report Type: 
  Country: None (occurrence: None)
  Receive Date: 20051024
  Receipt Date: 20051011
  Transmission Date: 20060501
  Serious: Yes (Other)
  Sender: FDA-Public Use
  Company Number: 2005141473

PATIENT
  Age: 65 Year
  Sex: Female

DRUGS (4)
  1. BEXTRA [Suspect]
     Indication: ANTIINFLAMMATORY THERAPY
     Dosage: ORAL
     Dates: start: 20030801, end: 20030101
  2. BEXTRA [Suspect]
     Indication: PAIN IN EXTREMITY
     Dosage: ORAL
     Dates: start: 20030801, end: 20030101
  3. VIOXX [Suspect]
     Indication: ANALGESIC EFFECT
     Dates: start: 20030801, end: 20030801
  4. VIOXX [Suspect]
     Indication: ANTIINFLAMMATORY THERAPY
     Dates: start: 20030801, end: 20030801

REACTIONS (2)
  - COMPLEX REGIONAL PAIN SYNDROME [None]
  - OEDEMA PERIPHERAL [None]
